FAERS Safety Report 10423502 (Version 1)
Quarter: 2014Q3

REPORT INFORMATION
  Report Type: Spontaneous
  Country: FR (occurrence: FR)
  Receive Date: 20140902
  Receipt Date: 20140902
  Transmission Date: 20150326
  Serious: Yes (Hospitalization)
  Sender: FDA-Public Use
  Company Number: FR-US-EMD SERONO, INC.-7315626

PATIENT
  Age: 23 Year
  Sex: Female

DRUGS (6)
  1. OVITRELLE [Suspect]
     Active Substance: CHORIOGONADOTROPIN ALFA
     Indication: ANOVULATORY CYCLE
     Route: 058
     Dates: start: 20140618, end: 20140618
  2. PUREGON                            /01348901/ [Suspect]
     Active Substance: FOLLITROPIN
     Indication: PRODUCT USED FOR UNKNOWN INDICATION
     Dates: start: 20140606, end: 20140611
  3. ORGALUTRAN [Concomitant]
     Active Substance: GANIRELIX ACETATE
     Indication: PRODUCT USED FOR UNKNOWN INDICATION
     Dosage: 0.25 MG/ 0.5 ML
     Route: 058
     Dates: start: 20140612, end: 20140618
  4. PROVAMES [Concomitant]
     Active Substance: ESTRADIOL
     Indication: PRODUCT USED FOR UNKNOWN INDICATION
     Route: 048
     Dates: start: 20140531
  5. PUREGON                            /01348901/ [Suspect]
     Active Substance: FOLLITROPIN
     Dates: start: 20140612, end: 20140613
  6. PUREGON                            /01348901/ [Suspect]
     Active Substance: FOLLITROPIN
     Dates: start: 20140616, end: 20140618

REACTIONS (3)
  - Ovarian hyperstimulation syndrome [Recovered/Resolved]
  - Haemorrhagic ovarian cyst [Recovered/Resolved]
  - Peritoneal haemorrhage [Recovered/Resolved]

NARRATIVE: CASE EVENT DATE: 20140620
